FAERS Safety Report 20163272 (Version 3)
Quarter: 2022Q1

REPORT INFORMATION
  Report Type: Report from Study
  Country: RU (occurrence: RU)
  Receive Date: 20211209
  Receipt Date: 20220126
  Transmission Date: 20220424
  Serious: Yes (Hospitalization, Congenital Anomaly)
  Sender: FDA-Public Use
  Company Number: RU-TEVA-2021-RU-1980047

PATIENT
  Age: 33 Year
  Sex: Female
  Weight: 52 kg

DRUGS (5)
  1. FREMANEZUMAB [Suspect]
     Active Substance: FREMANEZUMAB
     Indication: Migraine
     Dosage: OL: ACTIVE TREATMENT PHASE
     Route: 058
     Dates: start: 20210915, end: 20210915
  2. FREMANEZUMAB [Suspect]
     Active Substance: FREMANEZUMAB
     Dosage: DB: FREMANEZUMAB 225MG OR PLACEBO
     Route: 058
     Dates: start: 20210617, end: 20210915
  3. ZOLMITRIPTAN [Concomitant]
     Active Substance: ZOLMITRIPTAN
     Indication: Migraine
     Dosage: TAKING DURING THE PREGNANCY, ONGOING
     Route: 048
     Dates: start: 20210523
  4. GAM-COVID-VAC: SPUTNIK V [Concomitant]
     Indication: COVID-19 immunisation
     Dosage: BEFORE CONCEPTION
     Route: 030
     Dates: start: 20210910, end: 20210910
  5. ELETRIPTAN [Concomitant]
     Active Substance: ELETRIPTAN
     Indication: Migraine
     Dosage: 40 MG, AS NEEDED
     Route: 048
     Dates: start: 2016

REACTIONS (2)
  - Abortion spontaneous [Unknown]
  - Maternal exposure during pregnancy [Unknown]

NARRATIVE: CASE EVENT DATE: 20210916
